FAERS Safety Report 5588019-9 (Version None)
Quarter: 2008Q1

REPORT INFORMATION
  Report Type: 
  Country: None (occurrence: None)
  Receive Date: 20080111
  Receipt Date: 20080102
  Transmission Date: 20080703
  Serious: Yes (Other)
  Sender: FDA-Public Use
  Company Number: PHBS2008BR00474

PATIENT
  Sex: Female
  Weight: 63 kg

DRUGS (2)
  1. METHERGINE [Suspect]
     Indication: POSTPARTUM HAEMORRHAGE
     Dosage: 0.125 MG/DAY
     Route: 048
     Dates: start: 20071201, end: 20080101
  2. ANTIALLERGIC AGENTS, EXCL CORTICOSTEROIDS [Concomitant]

REACTIONS (3)
  - CONDITION AGGRAVATED [None]
  - PAIN [None]
  - POSTPARTUM HAEMORRHAGE [None]
